FAERS Safety Report 10790882 (Version 1)
Quarter: 2015Q1

REPORT INFORMATION
  Report Type: Spontaneous
  Country: US (occurrence: US)
  Receive Date: 20150212
  Receipt Date: 20150212
  Transmission Date: 20150721
  Serious: No
  Sender: FDA-Public Use
  Company Number: US-TARO-2014TAR00632

PATIENT
  Age: 39 Year
  Sex: Female
  Weight: 56.69 kg

DRUGS (2)
  1. FLUOCINONIDE TOPICAL SOLUTION USP 0.05% [Suspect]
     Active Substance: FLUOCINONIDE
     Indication: ALLERGY TO CHEMICALS
     Dosage: UNK UNK, 2X/DAY
     Route: 061
     Dates: start: 20141211, end: 20141215
  2. ALLEGRA [Concomitant]
     Active Substance: FEXOFENADINE HYDROCHLORIDE

REACTIONS (3)
  - Pain [Recovered/Resolved]
  - Burning sensation [Recovered/Resolved]
  - Alopecia [Recovered/Resolved]

NARRATIVE: CASE EVENT DATE: 20141214
